FAERS Safety Report 6993889-3 (Version None)
Quarter: 2010Q3

REPORT INFORMATION
  Report Type: 
  Country: None (occurrence: None)
  Receive Date: 20100917
  Receipt Date: 20080610
  Transmission Date: 20110219
  Serious: Yes (Other)
  Sender: FDA-Public Use
  Company Number: US-ASTRAZENECA-2007UW09649

PATIENT
  Age: 14917 Day
  Sex: Male

DRUGS (7)
  1. SEROQUEL [Suspect]
     Indication: BIPOLAR DISORDER
     Route: 048
     Dates: start: 20040201, end: 20060301
  2. SEROQUEL [Suspect]
     Dosage: 50 MG - 300 MG
     Route: 048
     Dates: start: 20040312
  3. ZYPREXA [Suspect]
     Dates: start: 20040201
  4. LISINOPRIL [Concomitant]
  5. TRILEPTAL [Concomitant]
     Dates: start: 20040312
  6. PAXIL [Concomitant]
     Dates: start: 20040312
  7. ATIVAN [Concomitant]
     Dates: start: 20060125

REACTIONS (4)
  - DIABETIC KETOACIDOSIS [None]
  - HYPOGLYCAEMIA [None]
  - TYPE 1 DIABETES MELLITUS [None]
  - TYPE 2 DIABETES MELLITUS [None]
